FAERS Safety Report 16011322 (Version 1)
Quarter: 2019Q1

REPORT INFORMATION
  Report Type: Report from Study
  Country: IN (occurrence: IN)
  Receive Date: 20190227
  Receipt Date: 20190227
  Transmission Date: 20190418
  Serious: Yes (Death)
  Sender: FDA-Public Use
  Company Number: PHHY2019IN045120

PATIENT
  Age: 29 Year
  Sex: Male

DRUGS (1)
  1. MYFORTIC [Suspect]
     Active Substance: MYCOPHENOLATE SODIUM
     Indication: RENAL TRANSPLANT
     Dosage: 360 MG, BID
     Route: 048
     Dates: start: 20130415

REACTIONS (1)
  - Death [Fatal]

NARRATIVE: CASE EVENT DATE: 201812
